FAERS Safety Report 15306269 (Version 1)
Quarter: 2018Q3

REPORT INFORMATION
  Report Type: Spontaneous
  Country: US (occurrence: US)
  Receive Date: 20180822
  Receipt Date: 20180822
  Transmission Date: 20181010
  Serious: No
  Sender: FDA-Public Use
  Company Number: US-PFIZER INC-2018336576

PATIENT
  Age: 36 Year
  Sex: Female

DRUGS (2)
  1. GABAPENTIN. [Suspect]
     Active Substance: GABAPENTIN
     Indication: MUSCLE SPASMS
  2. GABAPENTIN. [Suspect]
     Active Substance: GABAPENTIN
     Indication: NEURALGIA
     Dosage: ONE TABLET A DAY FOR 2 DAYS, AND 2 TABLETS A DAY FOR 2 DAYS AND THEN 3 TABLETS A DAY CONTINUE
     Dates: start: 201712, end: 201712

REACTIONS (3)
  - Drug ineffective for unapproved indication [Unknown]
  - Vomiting [Recovered/Resolved]
  - Feeling drunk [Recovered/Resolved]

NARRATIVE: CASE EVENT DATE: 201712
